FAERS Safety Report 7366853-2 (Version None)
Quarter: 2011Q1

REPORT INFORMATION
  Report Type: 
  Country: None (occurrence: None)
  Receive Date: 20110322
  Receipt Date: 20100303
  Transmission Date: 20110831
  Serious: Yes (Hospitalization)
  Sender: FDA-Public Use
  Company Number: A0849020A

PATIENT
  Age: 70 Year
  Sex: Female
  Weight: 65.9 kg

DRUGS (2)
  1. AVANDIA [Suspect]
     Indication: DIABETES MELLITUS
     Route: 048
     Dates: end: 20070101
  2. AVANDAMET [Suspect]
     Indication: DIABETES MELLITUS
     Route: 048

REACTIONS (3)
  - CARDIAC FAILURE CONGESTIVE [None]
  - HYPERTROPHIC CARDIOMYOPATHY [None]
  - BLOOD CHOLESTEROL INCREASED [None]
